FAERS Safety Report 9449036 (Version 1)
Quarter: 2013Q3

REPORT INFORMATION
  Report Type: Spontaneous
  Country: US (occurrence: US)
  Receive Date: 20130808
  Receipt Date: 20130808
  Transmission Date: 20140515
  Serious: No
  Sender: FDA-Public Use
  Company Number: US-009507513-1307USA016691

PATIENT
  Age: 58 Year
  Sex: Female

DRUGS (2)
  1. SAPHRIS [Suspect]
     Indication: BIPOLAR DISORDER
     Dosage: 5 MG, HS
     Route: 060
  2. PROZAC [Concomitant]

REACTIONS (3)
  - Nightmare [Unknown]
  - Underdose [Unknown]
  - Inappropriate schedule of drug administration [Unknown]
